FAERS Safety Report 18573146 (Version 2)
Quarter: 2020Q4

REPORT INFORMATION
  Report Type: Spontaneous
  Country: NL (occurrence: NL)
  Receive Date: 20201203
  Receipt Date: 20201219
  Transmission Date: 20210114
  Serious: Yes (Other)
  Sender: FDA-Public Use
  Company Number: NL-AUROBINDO-AUR-APL-2020-058789

PATIENT
  Sex: Female
  Weight: 53 kg

DRUGS (1)
  1. SUMATRIPTAN AUROBINDO TABLETS 100 MG [Suspect]
     Active Substance: SUMATRIPTAN SUCCINATE
     Indication: MIGRAINE
     Dosage: 100 MILLIGRAM 1 OR MORE PER DAY PER MIGRAINE ATTACK
     Route: 065
     Dates: start: 2018

REACTIONS (4)
  - Dyspnoea [Recovered/Resolved]
  - Coordination abnormal [Recovered/Resolved]
  - Therapeutic response unexpected [Unknown]
  - Syncope [Recovered/Resolved]
